FAERS Safety Report 25003521 (Version 3)
Quarter: 2025Q1

REPORT INFORMATION
  Report Type: Spontaneous
  Country: GB (occurrence: GB)
  Receive Date: 20250224
  Receipt Date: 20250331
  Transmission Date: 20250409
  Serious: Yes (Hospitalization)
  Sender: MYLAN
  Company Number: GB-MYLANLABS-2025M1015257

PATIENT
  Sex: Male

DRUGS (12)
  1. CLOZARIL [Suspect]
     Active Substance: CLOZAPINE
     Indication: Schizophrenia
     Route: 048
     Dates: start: 20120720, end: 20250129
  2. CLOZARIL [Suspect]
     Active Substance: CLOZAPINE
     Dates: start: 20120720, end: 20250129
  3. CLOZARIL [Suspect]
     Active Substance: CLOZAPINE
     Dates: start: 20120720, end: 20250129
  4. CLOZARIL [Suspect]
     Active Substance: CLOZAPINE
     Route: 048
     Dates: start: 20120720, end: 20250129
  5. CLOZARIL [Suspect]
     Active Substance: CLOZAPINE
     Dosage: UNK, BID (350 MG NIGHT AND 100 MG IN MORNING)
     Dates: start: 20250131
  6. CLOZARIL [Suspect]
     Active Substance: CLOZAPINE
     Dosage: UNK, BID (350 MG NIGHT AND 100 MG IN MORNING)
     Dates: start: 20250131
  7. CLOZARIL [Suspect]
     Active Substance: CLOZAPINE
     Dosage: UNK, BID (350 MG NIGHT AND 100 MG IN MORNING)
     Route: 048
     Dates: start: 20250131
  8. CLOZARIL [Suspect]
     Active Substance: CLOZAPINE
     Dosage: UNK, BID (350 MG NIGHT AND 100 MG IN MORNING)
     Route: 048
     Dates: start: 20250131
  9. CLOZARIL [Suspect]
     Active Substance: CLOZAPINE
     Dosage: UNK, BID (300MG EACH NIGHT 50 MG EACH MORNING NOW)
     Route: 048
  10. CLOZARIL [Suspect]
     Active Substance: CLOZAPINE
     Dosage: UNK, BID (300MG EACH NIGHT 50 MG EACH MORNING NOW)
  11. CLOZARIL [Suspect]
     Active Substance: CLOZAPINE
     Dosage: UNK, BID (300MG EACH NIGHT 50 MG EACH MORNING NOW)
  12. CLOZARIL [Suspect]
     Active Substance: CLOZAPINE
     Dosage: UNK, BID (300MG EACH NIGHT 50 MG EACH MORNING NOW)
     Route: 048

REACTIONS (3)
  - Endocarditis [Recovering/Resolving]
  - Illness [Unknown]
  - Treatment noncompliance [Unknown]
